FAERS Safety Report 10102896 (Version 3)
Quarter: 2014Q2

REPORT INFORMATION
  Report Type: Spontaneous
  Country: JP (occurrence: JP)
  Receive Date: 20140424
  Receipt Date: 20140530
  Transmission Date: 20141212
  Serious: Yes (Other)
  Sender: FDA-Public Use
  Company Number: JP-PFIZER INC-2014109840

PATIENT
  Age: 40 Year
  Sex: Female
  Weight: 44 kg

DRUGS (8)
  1. REVATIO [Suspect]
     Indication: PULMONARY HYPERTENSION
     Dosage: 15 TO 30 MG/DAY FOR 3-7 DAYS
  2. REVATIO [Suspect]
     Dosage: 10 MG, 3X/DAY (TOTAL 30 MG DAILY)
     Route: 048
     Dates: start: 20140124, end: 20140205
  3. PRAZAXA [Concomitant]
     Indication: ATRIAL FIBRILLATION
     Dosage: 110 MG, 2X/DAY
  4. DORNER [Concomitant]
     Indication: PULMONARY HYPERTENSION
     Dosage: 20 UG, 3X/DAY
     Dates: end: 20140203
  5. NITOROL [Concomitant]
     Dosage: 5 MG, 3X/DAY
  6. DIART [Concomitant]
     Dosage: 30 MG, 1X/DAY
     Dates: end: 20140130
  7. LASIX [Concomitant]
     Dosage: 20 MG, UNK
  8. RENIVACE [Concomitant]
     Indication: CARDIAC FAILURE
     Dosage: 2.5 MG, 1X/DAY
     Dates: start: 20140118, end: 20140120

REACTIONS (2)
  - Pulmonary congestion [Recovered/Resolved]
  - Weight increased [Unknown]
